FAERS Safety Report 23087335 (Version 2)
Quarter: 2023Q4

REPORT INFORMATION
  Report Type: Spontaneous
  Country: US (occurrence: None)
  Receive Date: 20231020
  Receipt Date: 20231228
  Transmission Date: 20240109
  Serious: Yes (Other)
  Sender: FDA-Public Use
  Company Number: US-MDD US Operations-MDD202310-003923

PATIENT
  Age: 78 Year
  Sex: Male
  Weight: 86.18 kg

DRUGS (9)
  1. APOKYN [Suspect]
     Active Substance: APOMORPHINE HYDROCHLORIDE
     Indication: Parkinson^s disease
     Route: 058
     Dates: start: 20230929
  2. APOKYN [Suspect]
     Active Substance: APOMORPHINE HYDROCHLORIDE
     Dosage: INJECT 0.1 ML UNDER THE SKIN AS STARTER DOSE
  3. APOKYN [Suspect]
     Active Substance: APOMORPHINE HYDROCHLORIDE
     Dosage: TITRATE BY 0.1 ML EVERY FEW DAYS UP TO EFFECTIVE MAXIMUM RECOMMENDED DOSE OF 0.6 ML (DOSES MUST BE S
  4. APOKYN [Suspect]
     Active Substance: APOMORPHINE HYDROCHLORIDE
     Dates: start: 20230930
  5. APOKYN [Suspect]
     Active Substance: APOMORPHINE HYDROCHLORIDE
     Dates: start: 20230930, end: 20231206
  6. CARBIDOPA [Concomitant]
     Active Substance: CARBIDOPA
     Dosage: NOT PROVIDED
  7. LEVODOPA [Concomitant]
     Active Substance: LEVODOPA
     Dosage: NOT PROVIDED
  8. Norenz [Concomitant]
     Dosage: NOT PROVIDED
  9. DROXIDOPA [Concomitant]
     Active Substance: DROXIDOPA
     Dosage: NOT PROVIDED

REACTIONS (9)
  - Posture abnormal [Recovered/Resolved]
  - Respiratory distress [Recovered/Resolved]
  - Breath sounds abnormal [Recovered/Resolved]
  - Somnolence [Recovered/Resolved]
  - Somnolence [Recovered/Resolved]
  - Dizziness [Recovered/Resolved]
  - Syncope [Unknown]
  - Fall [Unknown]
  - Inappropriate schedule of product administration [Unknown]

NARRATIVE: CASE EVENT DATE: 20230929
